FAERS Safety Report 4771702-2 (Version None)
Quarter: 2005Q3

REPORT INFORMATION
  Report Type: 
  Country: None (occurrence: None)
  Receive Date: 20050916
  Receipt Date: 20050907
  Transmission Date: 20060218
  Serious: Yes (Hospitalization)
  Sender: FDA-Public Use
  Company Number: 200513041EU

PATIENT
  Age: 72 Year
  Sex: Female

DRUGS (1)
  1. TRENTAL [Suspect]
     Route: 048
     Dates: start: 20050904, end: 20050904

REACTIONS (5)
  - DIARRHOEA [None]
  - DYSPEPSIA [None]
  - NAUSEA [None]
  - VERTIGO [None]
  - VOMITING [None]
